FAERS Safety Report 8599332-5 (Version None)
Quarter: 2012Q3

REPORT INFORMATION
  Report Type: 
  Country: None (occurrence: None)
  Receive Date: 20120816
  Receipt Date: 20120518
  Transmission Date: 20120928
  Serious: Yes (Hospitalization)
  Sender: FDA-Public Use
  Company Number: US-AMGEN-USASP2012031862

PATIENT

DRUGS (4)
  1. NEUPOGEN [Suspect]
     Indication: PRODUCT USED FOR UNKNOWN INDICATION
     Dosage: 480 MUG, UNK
  2. NEUPOGEN [Suspect]
     Dosage: 480 MUG, UNK
  3. NEUPOGEN [Suspect]
  4. NEUPOGEN [Suspect]

REACTIONS (1)
  - BONE PAIN [None]
